FAERS Safety Report 10682571 (Version 1)
Quarter: 2014Q4

REPORT INFORMATION
  Report Type: Spontaneous
  Country: US (occurrence: None)
  Receive Date: 20141209
  Receipt Date: 20141209
  Transmission Date: 20150529
  Serious: Yes (Other)
  Sender: FDA-Public Use
  Company Number: 395922

PATIENT
  Age: 76 Year
  Sex: Female
  Weight: 45.4 kg

DRUGS (1)
  1. NOVOLOG [Suspect]
     Active Substance: INSULIN ASPART
     Indication: DIABETES MELLITUS
     Dosage: SLIDING SCALE
     Route: 058
     Dates: end: 20131106

REACTIONS (1)
  - Hypoglycaemic coma [None]

NARRATIVE: CASE EVENT DATE: 20131101
